FAERS Safety Report 9057681 (Version 1)
Quarter: 2013Q1

REPORT INFORMATION
  Report Type: Spontaneous
  Country: US (occurrence: None)
  Receive Date: 20130204
  Receipt Date: 20130204
  Transmission Date: 20140127
  Serious: Yes (Death, Hospitalization)
  Sender: FDA-Public Use
  Company Number: None

PATIENT
  Age: 61 Year
  Sex: Male
  Weight: 70.3 kg

DRUGS (1)
  1. CIPROFLOXACIN [Suspect]
     Indication: PROSTATITIS
     Route: 048
     Dates: start: 20121012, end: 20121111

REACTIONS (4)
  - Clostridium test positive [None]
  - Respiratory distress [None]
  - Diarrhoea [None]
  - Renal failure acute [None]
